FAERS Safety Report 6122765-3 (Version None)
Quarter: 2009Q1

REPORT INFORMATION
  Report Type: 
  Country: None (occurrence: None)
  Receive Date: 20090318
  Receipt Date: 20081021
  Transmission Date: 20090719
  Serious: No
  Sender: FDA-Public Use
  Company Number: US-AMGEN-KDL314585

PATIENT
  Sex: Female

DRUGS (17)
  1. NEULASTA [Suspect]
     Indication: CHEMOTHERAPY
     Dates: start: 20081016
  2. DEXAMETHASONE TAB [Concomitant]
  3. ZOFRAN [Concomitant]
  4. PACLITAXEL [Concomitant]
     Dates: start: 20081015
  5. CARBOPLATIN [Concomitant]
     Dates: start: 20081015
  6. ALBUTEROL [Concomitant]
  7. SENOKOT [Concomitant]
  8. LOVENOX [Concomitant]
  9. LEXAPRO [Concomitant]
  10. NEXIUM [Concomitant]
  11. FENTANYL-25 [Concomitant]
  12. LASIX [Concomitant]
  13. MEROPENEM [Concomitant]
  14. VANCOMYCIN [Concomitant]
  15. TRAZODONE HCL [Concomitant]
  16. MORPHINE [Concomitant]
  17. DILAUDID [Concomitant]

REACTIONS (1)
  - WHITE BLOOD CELL COUNT INCREASED [None]
